FAERS Safety Report 5191225-9 (Version None)
Quarter: 2006Q4

REPORT INFORMATION
  Report Type: 
  Country: None (occurrence: None)
  Receive Date: 20061226
  Receipt Date: 20060929
  Transmission Date: 20070319
  Serious: Yes (Other)
  Sender: FDA-Public Use
  Company Number: US-AVENTIS-200618180US

PATIENT
  Sex: Male
  Weight: 71.67 kg

DRUGS (9)
  1. LANTUS [Suspect]
     Indication: DIABETES MELLITUS
     Dosage: DOSE: 10-12
  2. NOVOLOG [Concomitant]
     Dosage: DOSE: UNK
  3. HUMALOG [Concomitant]
     Dosage: DOSE: UNK
  4. WARFARIN SODIUM [Concomitant]
  5. LANOXIN [Concomitant]
  6. LISINOPRIL [Concomitant]
  7. METOPROLOL SUCCINATE [Concomitant]
  8. K-DUR 10 [Concomitant]
  9. BUMEX [Concomitant]

REACTIONS (9)
  - BLINDNESS UNILATERAL [None]
  - BLOOD GLUCOSE DECREASED [None]
  - BLOOD GLUCOSE INCREASED [None]
  - CAROTID ENDARTERECTOMY [None]
  - CORONARY ARTERY OCCLUSION [None]
  - DEAFNESS UNILATERAL [None]
  - FATIGUE [None]
  - HYPERHIDROSIS [None]
  - TRANSIENT ISCHAEMIC ATTACK [None]
